FAERS Safety Report 7461405-8 (Version None)
Quarter: 2011Q2

REPORT INFORMATION
  Report Type: 
  Country: None (occurrence: None)
  Receive Date: 20110428
  Receipt Date: 20100903
  Transmission Date: 20111010
  Serious: Yes (Hospitalization)
  Sender: FDA-Public Use
  Company Number: 2010GW000714

PATIENT
  Age: 86 Year
  Sex: Female

DRUGS (3)
  1. ALDARA [Concomitant]
  2. IMIQUIMOD [Suspect]
     Indication: ACTINIC KERATOSIS
     Dosage: 5 PCT;QW;TOP
     Route: 061
     Dates: start: 20100101, end: 20100101
  3. IMIQUIMOD [Suspect]
     Indication: BASAL CELL CARCINOMA
     Dosage: 5 PCT;QW;TOP
     Route: 061
     Dates: start: 20100101, end: 20100101

REACTIONS (4)
  - PRODUCT SUBSTITUTION ISSUE [None]
  - APPLICATION SITE EXFOLIATION [None]
  - APPLICATION SITE PRURITUS [None]
  - APPLICATION SITE SWELLING [None]
